FAERS Safety Report 25573824 (Version 2)
Quarter: 2025Q3

REPORT INFORMATION
  Report Type: Report from Study
  Country: EU (occurrence: EU)
  Receive Date: 20250717
  Receipt Date: 20250730
  Transmission Date: 20251020
  Serious: Yes (Other)
  Sender: AMGEN
  Company Number: EU-AMGEN-ITASP2025138166

PATIENT
  Age: 75 Year
  Sex: Male

DRUGS (2)
  1. SOTORASIB [Suspect]
     Active Substance: SOTORASIB
     Indication: Product used for unknown indication
     Route: 065
     Dates: start: 202207
  2. SOTORASIB [Suspect]
     Active Substance: SOTORASIB
     Route: 065
     Dates: start: 20231016, end: 20240326

REACTIONS (5)
  - Metastases to central nervous system [Unknown]
  - Metastases to lymph nodes [Unknown]
  - Alanine aminotransferase increased [Unknown]
  - Aspartate aminotransferase increased [Unknown]
  - Fatigue [Unknown]

NARRATIVE: CASE EVENT DATE: 20230704
